FAERS Safety Report 7111232-6 (Version None)
Quarter: 2010Q4

REPORT INFORMATION
  Report Type: 
  Country: None (occurrence: None)
  Receive Date: 20101118
  Receipt Date: 20100201
  Transmission Date: 20110411
  Serious: Yes (Other)
  Sender: FDA-Public Use
  Company Number: US-PFIZER INC-2009311988

PATIENT
  Sex: Male
  Weight: 58.957 kg

DRUGS (1)
  1. ZYVOX [Suspect]
     Dosage: FREQUENCY: 2X/DAILY,
     Dates: start: 20050106, end: 20091118

REACTIONS (2)
  - NEUROPATHY PERIPHERAL [None]
  - OPTIC NEURITIS [None]
